FAERS Safety Report 9833580 (Version 1)
Quarter: 2014Q1

REPORT INFORMATION
  Report Type: Spontaneous
  Country: DE (occurrence: DE)
  Receive Date: 20140122
  Receipt Date: 20140122
  Transmission Date: 20141002
  Serious: Yes (Hospitalization)
  Sender: FDA-Public Use
  Company Number: DE-BIOGENIDEC-2014BI006059

PATIENT
  Age: 55 Year
  Sex: Female
  Weight: 52 kg

DRUGS (5)
  1. AVONEX [Suspect]
     Indication: MULTIPLE SCLEROSIS
     Route: 030
     Dates: start: 200811
  2. IBUPROFEN [Concomitant]
     Indication: PROPHYLAXIS
     Dates: start: 200811
  3. LORAZEPAM [Concomitant]
     Indication: SLEEP DISORDER
     Dates: start: 1993
  4. ENAHEXAL [Concomitant]
     Indication: HYPERTENSION
     Dates: start: 1993
  5. CARVEDILOL [Concomitant]
     Indication: HYPERTENSION
     Dates: start: 1993

REACTIONS (2)
  - Epistaxis [Recovered/Resolved]
  - Flushing [Recovered/Resolved]
